FAERS Safety Report 5719602-5 (Version None)
Quarter: 2008Q2

REPORT INFORMATION
  Report Type: 
  Country: None (occurrence: None)
  Receive Date: 20080428
  Receipt Date: 20080425
  Transmission Date: 20081010
  Serious: Yes (Hospitalization)
  Sender: FDA-Public Use
  Company Number: B0515841A

PATIENT
  Age: 83 Year
  Sex: Male

DRUGS (7)
  1. ZINAT [Suspect]
     Indication: DRUG USE FOR UNKNOWN INDICATION
     Dosage: 500MG TWICE PER DAY
     Route: 048
     Dates: start: 20061025, end: 20061106
  2. ROCEPHIN [Suspect]
     Indication: DRUG USE FOR UNKNOWN INDICATION
     Dosage: 1G PER DAY
     Route: 042
     Dates: start: 20061023, end: 20061025
  3. RETIN-A [Concomitant]
     Route: 061
     Dates: start: 20060926, end: 20061025
  4. DAFALGAN [Concomitant]
     Dosage: 1G THREE TIMES PER DAY
  5. EFFEXOR [Concomitant]
     Dosage: 75MG PER DAY
     Route: 048
     Dates: start: 20060831
  6. MADOPAR [Concomitant]
     Dosage: 125MG THREE TIMES PER DAY
     Route: 048
     Dates: start: 20060831
  7. EXELON [Concomitant]
     Dosage: 6MG TWICE PER DAY
     Route: 048
     Dates: start: 20060831

REACTIONS (13)
  - CONJUNCTIVITIS [None]
  - ENTEROBACTER INFECTION [None]
  - ERYTHEMA [None]
  - ERYTHEMA MULTIFORME [None]
  - GENITAL ERYTHEMA [None]
  - HYPERSENSITIVITY [None]
  - RASH MACULO-PAPULAR [None]
  - RASH PAPULAR [None]
  - SKIN EXFOLIATION [None]
  - STAPHYLOCOCCAL INFECTION [None]
  - STEVENS-JOHNSON SYNDROME [None]
  - TONGUE DISCOLOURATION [None]
  - TOXIC EPIDERMAL NECROLYSIS [None]
